FAERS Safety Report 5221841-7 (Version None)
Quarter: 2007Q1

REPORT INFORMATION
  Report Type: 
  Country: None (occurrence: None)
  Receive Date: 20070126
  Receipt Date: 20070126
  Transmission Date: 20070707
  Serious: Yes (Other)
  Sender: FDA-Public Use
  Company Number: None

PATIENT
  Sex: Male

DRUGS (2)
  1. XYLOCAINE [Suspect]
     Indication: ANAESTHESIA
     Dosage: 50 ML OR 250MG ONCE IV
     Route: 042
     Dates: start: 20060125, end: 20060125
  2. XYLOCAINE [Suspect]
     Indication: ANAESTHESIA
     Dosage: 50 ML OR 250MG ONCE IV
     Route: 042
     Dates: start: 20070125

REACTIONS (3)
  - DRUG INEFFECTIVE [None]
  - ILL-DEFINED DISORDER [None]
  - PROCEDURAL COMPLICATION [None]
